FAERS Safety Report 9729533 (Version 2)
Quarter: 2013Q4

REPORT INFORMATION
  Report Type: Spontaneous
  Country: US (occurrence: US)
  Receive Date: 20131204
  Receipt Date: 20131204
  Transmission Date: 20140711
  Serious: No
  Sender: FDA-Public Use
  Company Number: US-GILEAD-2009-0021434

PATIENT
  Sex: Female

DRUGS (29)
  1. LETAIRIS [Suspect]
     Indication: PULMONARY ARTERIAL HYPERTENSION
     Route: 048
     Dates: start: 20090409
  2. METOPROLOL [Concomitant]
  3. CARTIA XT [Concomitant]
  4. SIMVASTATIN [Concomitant]
  5. SPIRINOLACTONE-HCTZ [Concomitant]
  6. CARISOPRODOL [Concomitant]
  7. WARFARIN [Concomitant]
  8. FUROSEMIDE [Concomitant]
  9. NITROGLYCERIN 2% [Concomitant]
  10. SINGULAIR [Concomitant]
  11. VENTOLIN [Concomitant]
  12. PREDNISONE [Concomitant]
  13. ALLOPURINOL [Concomitant]
  14. ROXICET [Concomitant]
  15. QVAR [Concomitant]
  16. LEFLUNOMIDE [Concomitant]
  17. GABAPENTIN [Concomitant]
  18. METFORMIN HCL [Concomitant]
  19. AZOPT 1% [Concomitant]
  20. BRIMONIDINE 0.2% [Concomitant]
  21. PAROXETINE [Concomitant]
  22. NEXIUM [Concomitant]
  23. SSD 1% [Concomitant]
  24. BONIVA [Concomitant]
  25. FISH OIL [Concomitant]
  26. MAGNESIUM OXIDE [Concomitant]
  27. MULTIVITAMIN [Concomitant]
  28. CALCIUM + VITAMIN D [Concomitant]
  29. VITAMIN C [Concomitant]

REACTIONS (7)
  - Pneumonia [Recovered/Resolved]
  - Diplopia [Recovered/Resolved]
  - Dizziness [Recovered/Resolved]
  - Dizziness [Unknown]
  - Somnolence [Unknown]
  - Malaise [Unknown]
  - Dyspnoea [Unknown]
